FAERS Safety Report 10189724 (Version 1)
Quarter: 2014Q2

REPORT INFORMATION
  Report Type: Spontaneous
  Country: US (occurrence: US)
  Receive Date: 20140522
  Receipt Date: 20140522
  Transmission Date: 20141212
  Serious: Yes (Hospitalization)
  Sender: FDA-Public Use
  Company Number: US-SA-2014SA039292

PATIENT
  Age: 56 Year
  Sex: Female

DRUGS (3)
  1. LANTUS SOLOSTAR [Suspect]
     Indication: PRODUCT USED FOR UNKNOWN INDICATION
     Route: 065
  2. SOLOSTAR [Suspect]
     Indication: DEVICE THERAPY
  3. HUMULIN R [Concomitant]

REACTIONS (3)
  - Infection [Unknown]
  - Blood glucose increased [Unknown]
  - Malaise [Unknown]
